FAERS Safety Report 11911529 (Version 1)
Quarter: 2016Q1

REPORT INFORMATION
  Report Type: Spontaneous
  Country: FR (occurrence: FR)
  Receive Date: 20160112
  Receipt Date: 20160112
  Transmission Date: 20160526
  Serious: Yes (Death, Hospitalization)
  Sender: FDA-Public Use
  Company Number: FR-PFIZER INC-2016007747

PATIENT
  Age: 66 Year
  Sex: Male

DRUGS (1)
  1. EFFEXOR LP [Suspect]
     Active Substance: VENLAFAXINE HYDROCHLORIDE
     Indication: ADJUSTMENT DISORDER WITH DEPRESSED MOOD
     Dosage: 75 MG, UNK
     Dates: start: 201501

REACTIONS (5)
  - Coma [Fatal]
  - Cerebral haemorrhage [Fatal]
  - Headache [Unknown]
  - Hypertensive crisis [Unknown]
  - Factor VII deficiency [Unknown]

NARRATIVE: CASE EVENT DATE: 201511
